FAERS Safety Report 10474014 (Version 1)
Quarter: 2014Q3

REPORT INFORMATION
  Report Type: Spontaneous
  Country: US (occurrence: US)
  Receive Date: 20140924
  Receipt Date: 20140924
  Transmission Date: 20150326
  Serious: Yes (Other)
  Sender: FDA-Public Use
  Company Number: US-ACTAVIS-2014-20504

PATIENT
  Age: 50 Year
  Sex: Female

DRUGS (1)
  1. TAMOXIFEN CITRATE (WATSON LABORATORIES) [Suspect]
     Active Substance: TAMOXIFEN CITRATE
     Indication: BREAST CANCER
     Dosage: 20 MG, DAILY
     Route: 065

REACTIONS (1)
  - Retinopathy [Unknown]
